FAERS Safety Report 19795608 (Version 1)
Quarter: 2021Q3

REPORT INFORMATION
  Report Type: Spontaneous
  Country: US (occurrence: US)
  Receive Date: 20210904
  Receipt Date: 20210904
  Transmission Date: 20211014
  Serious: No
  Sender: FDA-Public Use
  Company Number: None

PATIENT
  Age: 67 Year
  Sex: Female
  Weight: 63 kg

DRUGS (8)
  1. ASPIRI 81 MG EVERY OTHER DAY [Concomitant]
  2. AMLODIPINE 2.5 MG TWICE A DAY [Concomitant]
  3. ATORVASTATIN 10 MG ONCE A DAY [Concomitant]
  4. BUPROPION 300MG ONCE A DAY [Concomitant]
  5. BELSOMRA [Suspect]
     Active Substance: SUVOREXANT
     Indication: INSOMNIA
     Dosage: ?          QUANTITY:1 TABLET(S);?
     Route: 048
     Dates: start: 20210902, end: 20210904
  6. BELSOMRA [Suspect]
     Active Substance: SUVOREXANT
     Indication: MIDDLE INSOMNIA
     Dosage: ?          QUANTITY:1 TABLET(S);?
     Route: 048
     Dates: start: 20210902, end: 20210904
  7. MENOPAUSE CONTROL (SUPPLEMENT) [Concomitant]
  8. CALCIUM CITRATE 1000MG DAILY [Concomitant]

REACTIONS (2)
  - Heart rate increased [None]
  - Nightmare [None]

NARRATIVE: CASE EVENT DATE: 20210902
